FAERS Safety Report 18764056 (Version 1)
Quarter: 2021Q1

REPORT INFORMATION
  Report Type: Spontaneous
  Country: ES (occurrence: ES)
  Receive Date: 20210120
  Receipt Date: 20210120
  Transmission Date: 20210419
  Serious: Yes (Death, Hospitalization, Other)
  Sender: FDA-Public Use
  Company Number: NVSC2021ES010209

PATIENT
  Sex: Female

DRUGS (3)
  1. URALYT URATO [HERBALS/MINERALS] [Suspect]
     Active Substance: HERBALS\MINERALS
     Indication: NEPHROLITHIASIS
     Dosage: UNK
     Route: 065
  2. AMOXICILLIN. [Suspect]
     Active Substance: AMOXICILLIN
     Indication: PRODUCT USED FOR UNKNOWN INDICATION
     Dosage: ANTIBIOTICS FOR 9 DAYS
     Route: 065
  3. AUGMENTIN [Suspect]
     Active Substance: AMOXICILLIN\CLAVULANATE POTASSIUM
     Indication: PRODUCT USED FOR UNKNOWN INDICATION
     Dosage: 875/125 3X DAY
     Route: 065

REACTIONS (7)
  - Flank pain [Recovered/Resolved]
  - Urinary tract inflammation [Recovered/Resolved]
  - Bladder pain [Recovered/Resolved]
  - Nephrolithiasis [Recovered/Resolved]
  - Product use in unapproved indication [Unknown]
  - Klebsiella infection [Recovered/Resolved]
  - Renal pain [Recovering/Resolving]

NARRATIVE: CASE EVENT DATE: 202003
